FAERS Safety Report 7658766-3 (Version None)
Quarter: 2011Q3

REPORT INFORMATION
  Report Type: 
  Country: None (occurrence: None)
  Receive Date: 20110804
  Receipt Date: 20110804
  Transmission Date: 20111222
  Serious: Yes (Hospitalization, Other)
  Sender: FDA-Public Use
  Company Number: None

PATIENT
  Age: 76 Year
  Sex: Male
  Weight: 80.6 kg

DRUGS (2)
  1. BORTEZOMIB [Suspect]
     Indication: B-CELL LYMPHOMA
     Dosage: BORTEZOMIB EVERY WEEK IV
     Route: 042
     Dates: start: 20110708, end: 20110715
  2. TEMSIROLIMUS [Suspect]
     Indication: B-CELL LYMPHOMA
     Dosage: TEMSIROLIMUS EVERY WEEK IV
     Route: 042
     Dates: start: 20110708, end: 20110715

REACTIONS (2)
  - VASOGENIC CEREBRAL OEDEMA [None]
  - GRAND MAL CONVULSION [None]
